FAERS Safety Report 5751151-0 (Version None)
Quarter: 2008Q2

REPORT INFORMATION
  Report Type: 
  Country: None (occurrence: None)
  Receive Date: 20080528
  Receipt Date: 20080520
  Transmission Date: 20081010
  Serious: Yes (Hospitalization)
  Sender: FDA-Public Use
  Company Number: SE-PFIZER INC-2008044292

PATIENT
  Age: 70 Year
  Sex: Male
  Weight: 90 kg

DRUGS (7)
  1. GENOTROPIN [Suspect]
     Indication: HYPOPITUITARISM
     Route: 058
  2. COZAAR [Concomitant]
     Indication: HYPERTENSION
  3. CORTISONE ACETATE [Concomitant]
     Indication: BLOOD CORTICOSTERONE DECREASED
  4. TESTOSTERONE ENANTHATE [Concomitant]
     Indication: HYPOGONADISM
  5. TESTOSTERONE ENANTHATE [Concomitant]
  6. LEVOTHYROXINE SODIUM [Concomitant]
     Indication: HYPOTHYROIDISM
  7. PROPAVAN [Concomitant]
     Indication: INSOMNIA

REACTIONS (1)
  - PROSTATE CANCER [None]
